FAERS Safety Report 17054395 (Version 2)
Quarter: 2019Q4

REPORT INFORMATION
  Report Type: Spontaneous
  Country: US (occurrence: US)
  Receive Date: 20191120
  Receipt Date: 20191127
  Transmission Date: 20200122
  Serious: Yes (Other)
  Sender: FDA-Public Use
  Company Number: US-VERTEX PHARMACEUTICALS-2019-011346

PATIENT
  Age: 22 Year
  Sex: Female

DRUGS (1)
  1. TRIKAFTA [Suspect]
     Active Substance: ELEXACAFTOR\IVACAFTOR\TEZACAFTOR
     Indication: CYSTIC FIBROSIS
     Dosage: 100MG ELEXACAFTOR/ 50 MG TEZACAFTOR/ 75 MG IVACAFTOR; 150 MG IVACAFTOR
     Route: 048
     Dates: start: 20191110, end: 20191117

REACTIONS (8)
  - Rash [Recovering/Resolving]
  - Feeling abnormal [Recovering/Resolving]
  - Throat tightness [Recovered/Resolved]
  - Contusion [Recovered/Resolved]
  - Paraesthesia [Unknown]
  - Fatigue [Unknown]
  - Peripheral swelling [Recovered/Resolved]
  - Muscular weakness [Unknown]

NARRATIVE: CASE EVENT DATE: 20191111
